FAERS Safety Report 10183216 (Version 1)
Quarter: 2014Q2

REPORT INFORMATION
  Report Type: Spontaneous
  Country: US (occurrence: None)
  Receive Date: 20140416
  Receipt Date: 20140416
  Transmission Date: 20141212
  Serious: No
  Sender: FDA-Public Use
  Company Number: 163-POMAL-13114504

PATIENT
  Sex: Female

DRUGS (1)
  1. POMALYST(POMALIDOMIDE)(2 MILLIGRAM, CAPSULES) [Suspect]
     Indication: PLASMA CELL MYELOMA
     Dosage: 2 MG, 21 IN 21 D, PO
     Route: 048
     Dates: start: 20130815

REACTIONS (2)
  - Drug dose omission [None]
  - No adverse event [None]
